FAERS Safety Report 10172722 (Version 2)
Quarter: 2014Q2

REPORT INFORMATION
  Report Type: Spontaneous
  Country: US (occurrence: US)
  Receive Date: 20140515
  Receipt Date: 20140528
  Transmission Date: 20141212
  Serious: No
  Sender: FDA-Public Use
  Company Number: US-B.I. PHARMACEUTICALS,INC./RIDGEFIELD-2014-BI-20206BP

PATIENT
  Age: 69 Year
  Sex: Female

DRUGS (10)
  1. SPIRIVA [Suspect]
     Indication: CHRONIC OBSTRUCTIVE PULMONARY DISEASE
     Dosage: 18 MCG
     Route: 055
     Dates: start: 201402
  2. LISINOPRIL [Concomitant]
     Dosage: 20 MG
     Route: 048
  3. DILTIAZEM ER [Concomitant]
     Route: 048
  4. SIMVASTATIN [Concomitant]
     Route: 048
  5. CLOPIDOGREL [Concomitant]
     Route: 048
  6. ASPIRIN [Concomitant]
     Route: 048
  7. PEPCID AC [Concomitant]
     Route: 048
  8. ALBUTEROL INHALER [Concomitant]
     Route: 055
  9. ALBUTEROL NEBULIZER [Concomitant]
     Route: 055
  10. QVAR [Concomitant]
     Route: 055

REACTIONS (3)
  - Dyspnoea [Not Recovered/Not Resolved]
  - Product quality issue [Recovered/Resolved]
  - Product quality issue [Recovered/Resolved]
